FAERS Safety Report 10257370 (Version 1)
Quarter: 2014Q2

REPORT INFORMATION
  Report Type: Spontaneous
  Country: GB (occurrence: None)
  Receive Date: 20140620
  Receipt Date: 20140620
  Transmission Date: 20141212
  Serious: Yes (Other)
  Sender: FDA-Public Use
  Company Number: AUR-APL-2014-06501

PATIENT
  Age: 69 Year
  Sex: Female
  Weight: 70.4 kg

DRUGS (8)
  1. LISINOPRIL (LISINOPRIL) [Suspect]
     Indication: PRODUCT USED FOR UNKNOWN INDICATION
     Dates: start: 20140218
  2. AMOXICILLIN (AMOXICILLIN) [Concomitant]
  3. BENZOCAINE (BENZOCAINE) [Concomitant]
  4. CO-CODAMOL (CODEINE PHOSPHATE, PARACETAMOL) [Concomitant]
  5. DOUBLEBASE (ISOPROPYL MYRISTATE, PARAFFIN, LIQUID) [Concomitant]
  6. EZETIMIBE (EZETIMIBE) [Concomitant]
  7. IBUPROFEN (IBUPROFEN) [Concomitant]
  8. SIMVASTATIN (SIMVASTATIN) [Concomitant]

REACTIONS (1)
  - Lip swelling [None]
